FAERS Safety Report 14425661 (Version 1)
Quarter: 2018Q1

REPORT INFORMATION
  Report Type: Spontaneous
  Country: US (occurrence: US)
  Receive Date: 20180123
  Receipt Date: 20180123
  Transmission Date: 20180509
  Serious: Yes (Other)
  Sender: FDA-Public Use
  Company Number: US-JNJFOC-20180105625

PATIENT
  Age: 68 Year
  Sex: Female

DRUGS (22)
  1. IMBRUVICA [Suspect]
     Active Substance: IBRUTINIB
     Indication: CHRONIC LYMPHOCYTIC LEUKAEMIA
     Route: 048
     Dates: start: 20170517
  2. IRON [Suspect]
     Active Substance: IRON
     Indication: MICROCYTIC ANAEMIA
  3. AMBIEN [Concomitant]
     Active Substance: ZOLPIDEM TARTRATE
     Indication: SLEEP DISORDER
     Dosage: 10 MG, NIGHTLY AS NEEDED
     Route: 048
  4. VALTREX [Concomitant]
     Active Substance: VALACYCLOVIR HYDROCHLORIDE
     Route: 048
  5. ZEBETA [Concomitant]
     Active Substance: BISOPROLOL FUMARATE
     Dosage: 10 MG, AS NEEDED
  6. INFLUENZA [Concomitant]
     Active Substance: INFLUENZA VIRUS VACCINE
     Dates: start: 20170122
  7. VALSARTAN. [Concomitant]
     Active Substance: VALSARTAN
  8. ALBUTEROL. [Concomitant]
     Active Substance: ALBUTEROL
     Dosage: AS NEEDED
  9. BENADRYL ALLERGY [Concomitant]
     Active Substance: DIPHENHYDRAMINE HYDROCHLORIDE
  10. ZYLOPRIM [Concomitant]
     Active Substance: ALLOPURINOL
     Route: 048
  11. DIOVAN HCT [Concomitant]
     Active Substance: HYDROCHLOROTHIAZIDE\VALSARTAN
     Dosage: 80-12.5 MG PER TABLET, QD
     Route: 048
  12. IMBRUVICA [Suspect]
     Active Substance: IBRUTINIB
     Indication: CHRONIC LYMPHOCYTIC LEUKAEMIA
     Route: 048
     Dates: start: 20170510
  13. AZELASTINE. [Concomitant]
     Active Substance: AZELASTINE HYDROCHLORIDE
  14. XANAX [Concomitant]
     Active Substance: ALPRAZOLAM
     Dosage: 0.25 MG, QD (AT BED TIME)
     Route: 048
  15. MAOXEL [Concomitant]
     Route: 048
  16. POLYTRIM [Concomitant]
     Active Substance: POLYMYXIN B SULFATE\TRIMETHOPRIM SULFATE
     Dosage: 1 MG/ML, APPLY I DROP TO EYE AS NEEDED
     Route: 047
  17. NEXIUM [Concomitant]
     Active Substance: ESOMEPRAZOLE MAGNESIUM
     Route: 048
  18. LACTOBACILLUS [Concomitant]
     Active Substance: LACTOBACILLUS ACIDOPHILUS
  19. FERROUS SULFATE. [Concomitant]
     Active Substance: FERROUS SULFATE
     Dosage: 325 MG, BID (PATIENT TAKING DIFFERENTLY: TAKE 65 MG OF IRON BY MOUTH AS NEEDED)
     Route: 048
  20. FLONASE [Concomitant]
     Active Substance: FLUTICASONE PROPIONATE
     Dosage: 50 MCG/SPRAY, TWO TIMES A DAY AS NEEDED
  21. CULTURELLE [Concomitant]
     Active Substance: LACTOBACILLUS RHAMNOSUS
     Dosage: 10 BILLION CELL CAPSULE, TWO CAPSULES TWICE DAILY
  22. SYNTHROID [Concomitant]
     Active Substance: LEVOTHYROXINE SODIUM
     Route: 048

REACTIONS (12)
  - Onychoclasis [Unknown]
  - Sinus arrhythmia [Unknown]
  - Iron deficiency anaemia [Unknown]
  - Diarrhoea [Recovered/Resolved]
  - Constipation [Unknown]
  - Skin fissures [Unknown]
  - Anxiety [Unknown]
  - Upper-airway cough syndrome [Recovering/Resolving]
  - Bronchiolitis [Recovering/Resolving]
  - Neutropenia [Recovering/Resolving]
  - Balance disorder [Unknown]
  - Muscle spasms [Unknown]

NARRATIVE: CASE EVENT DATE: 20170808
